FAERS Safety Report 6063568-8 (Version None)
Quarter: 2009Q1

REPORT INFORMATION
  Report Type: 
  Country: None (occurrence: None)
  Receive Date: 20090129
  Receipt Date: 20090120
  Transmission Date: 20090719
  Serious: No
  Sender: FDA-Public Use
  Company Number: US024917

PATIENT
  Age: 67 Year
  Sex: Male
  Weight: 61.6892 kg

DRUGS (7)
  1. FENTORA [Suspect]
     Indication: PAIN
     Dosage: 600 UG Q 3-6 HRS PRN BUCCAL
     Route: 002
     Dates: start: 20071001, end: 20080801
  2. FENTORA [Suspect]
     Indication: PAIN
     Dosage: 800 UG BUCCAL
     Route: 002
     Dates: start: 20080801, end: 20080801
  3. FENTORA [Suspect]
     Indication: PAIN
     Dosage: 600 UG EVERY 3 HRS AS NEEDED BUCCAL
     Route: 002
     Dates: start: 20080801
  4. CODEINE [Concomitant]
  5. SYNTHROID [Concomitant]
  6. BLOOD PRESSURE MEDICATION [Concomitant]
  7. KADIAN [Concomitant]

REACTIONS (2)
  - DRUG PRESCRIBING ERROR [None]
  - GINGIVITIS [None]
